FAERS Safety Report 25746961 (Version 1)
Quarter: 2025Q3

REPORT INFORMATION
  Report Type: Spontaneous
  Country: US (occurrence: US)
  Receive Date: 20250901
  Receipt Date: 20250901
  Transmission Date: 20251020
  Serious: No
  Sender: SANOFI AVENTIS
  Company Number: US-SA-2025SA260669

PATIENT
  Age: 49 Year
  Sex: Male

DRUGS (2)
  1. DUPIXENT [Suspect]
     Active Substance: DUPILUMAB
     Indication: Psoriasis
     Dosage: 300MG QOW
     Route: 058
     Dates: start: 202105
  2. RINVOQ [Concomitant]
     Active Substance: UPADACITINIB

REACTIONS (5)
  - Psoriasis [Unknown]
  - Rebound effect [Unknown]
  - Pruritus [Unknown]
  - Rash [Unknown]
  - Product use in unapproved indication [Unknown]

NARRATIVE: CASE EVENT DATE: 20210501
